FAERS Safety Report 24646749 (Version 1)
Quarter: 2024Q4

REPORT INFORMATION
  Report Type: Spontaneous
  Country: US (occurrence: None)
  Receive Date: 20241120
  Receipt Date: 20241120
  Transmission Date: 20250115
  Serious: Yes (Death, Hospitalization)
  Sender: Public
  Company Number: None

PATIENT
  Age: 86 Year
  Sex: Female

DRUGS (1)
  1. LENALIDOMIDE [Suspect]
     Active Substance: LENALIDOMIDE
     Indication: Myelodysplastic syndrome
     Dosage: FREQUENCY : DAILY;?
     Route: 048
     Dates: start: 20240402, end: 20240816

REACTIONS (7)
  - Mental status changes [None]
  - Fall [None]
  - Hemiparesis [None]
  - Aphasia [None]
  - General physical health deterioration [None]
  - Unresponsive to stimuli [None]
  - Brain herniation [None]

NARRATIVE: CASE EVENT DATE: 20241114
